FAERS Safety Report 8838459 (Version 1)
Quarter: 2012Q4

REPORT INFORMATION
  Report Type: 
  Country: US (occurrence: US)
  Receive Date: 20121012
  Receipt Date: 20121012
  Transmission Date: 20130627
  Serious: Yes (Disabling)
  Sender: FDA-Public Use
  Company Number: US-US-EMD SERONO, INC.-7005960

PATIENT
  Age: 40 Year
  Sex: Male

DRUGS (2)
  1. REBIF [Suspect]
     Indication: MULTIPLE SCLEROSIS
     Route: 058
     Dates: start: 20090313
  2. TETRAHYDROCANNABINOL [Concomitant]
     Indication: MULTIPLE SCLEROSIS

REACTIONS (1)
  - Limb injury [Not Recovered/Not Resolved]
